FAERS Safety Report 6107495-6 (Version None)
Quarter: 2009Q1

REPORT INFORMATION
  Report Type: 
  Country: None (occurrence: None)
  Receive Date: 20090309
  Receipt Date: 20090225
  Transmission Date: 20090719
  Serious: Yes (Hospitalization)
  Sender: FDA-Public Use
  Company Number: JP-PFIZER INC-2009176622

PATIENT

DRUGS (2)
  1. ZITHROMAX [Suspect]
     Indication: TONSILLITIS
     Dosage: UNK
     Route: 048
     Dates: start: 20090223, end: 20090223
  2. CLINDAMYCIN HCL [Concomitant]
     Indication: TONSILLITIS
     Dosage: 600 MG, 1X/DAY
     Route: 042
     Dates: start: 20090223

REACTIONS (4)
  - ABDOMINAL PAIN UPPER [None]
  - C-REACTIVE PROTEIN INCREASED [None]
  - ENTERITIS [None]
  - WHITE BLOOD CELL COUNT INCREASED [None]
